FAERS Safety Report 20038305 (Version 2)
Quarter: 2021Q4

REPORT INFORMATION
  Report Type: Spontaneous
  Country: JP (occurrence: JP)
  Receive Date: 20211105
  Receipt Date: 20211119
  Transmission Date: 20220303
  Serious: Yes (Hospitalization)
  Sender: FDA-Public Use
  Company Number: JP-ASTELLAS-2021JP020325

PATIENT
  Sex: Female

DRUGS (2)
  1. LINACLOTIDE [Suspect]
     Active Substance: LINACLOTIDE
     Indication: Constipation
     Dosage: 0.5 MG/DAY, UNKNOWN FREQUENCY
     Route: 048
     Dates: end: 20211029
  2. SODIUM PICOSULFATE [Concomitant]
     Active Substance: SODIUM PICOSULFATE
     Dosage: UNK

REACTIONS (2)
  - Fracture [Recovering/Resolving]
  - Fall [Recovering/Resolving]
